FAERS Safety Report 6687204-2 (Version None)
Quarter: 2010Q2

REPORT INFORMATION
  Report Type: 
  Country: None (occurrence: None)
  Receive Date: 20100419
  Receipt Date: 20100412
  Transmission Date: 20101027
  Serious: Yes (Hospitalization, Other)
  Sender: FDA-Public Use
  Company Number: DE-PFIZER INC-2010013452

PATIENT
  Age: 81 Year
  Sex: Female

DRUGS (10)
  1. THELIN [Suspect]
     Indication: PULMONARY ARTERIAL HYPERTENSION
     Dosage: 100 MG/DAY
     Route: 048
     Dates: start: 20090301
  2. REVATIO [Suspect]
     Indication: PULMONARY ARTERIAL HYPERTENSION
     Dosage: UNK
     Route: 048
     Dates: start: 20090901
  3. PHENPROCOUMON [Concomitant]
     Indication: PULMONARY ARTERIAL HYPERTENSION
  4. SIMVASTATIN [Concomitant]
     Indication: PULMONARY ARTERIAL HYPERTENSION
  5. ATACAND [Concomitant]
  6. ALLOPURINOL [Concomitant]
  7. NEXIUM [Concomitant]
  8. TAMOXIFEN [Concomitant]
  9. LOSNESIUM [Concomitant]
  10. DIPYRONE TAB [Concomitant]

REACTIONS (10)
  - ARTHRALGIA [None]
  - BREAST CANCER [None]
  - DRY MOUTH [None]
  - GRIP STRENGTH DECREASED [None]
  - MUSCLE SPASMS [None]
  - MUSCULOSKELETAL STIFFNESS [None]
  - MYALGIA [None]
  - POLYMYALGIA RHEUMATICA [None]
  - RHEUMATOID ARTHRITIS [None]
  - RHEUMATOID FACTOR POSITIVE [None]
